FAERS Safety Report 7299572-1 (Version None)
Quarter: 2010Q4

REPORT INFORMATION
  Report Type: 
  Country: None (occurrence: None)
  Receive Date: 20101223
  Receipt Date: 20100415
  Transmission Date: 20110411
  Serious: Yes (Other)
  Sender: FDA-Public Use
  Company Number: 302882

PATIENT
  Age: 61 Year
  Sex: Male
  Weight: 66.2 kg

DRUGS (7)
  1. LEVEMIR [Suspect]
     Indication: TYPE 1 DIABETES MELLITUS
     Dosage: 10 IU, QD, SUBCUTANEOUS,  7 IU, QD, SUBCUTANEOUS
     Route: 058
     Dates: start: 20060101
  2. LEVEMIR [Suspect]
     Indication: TYPE 1 DIABETES MELLITUS
     Dosage: 10 IU, QD, SUBCUTANEOUS,  7 IU, QD, SUBCUTANEOUS
     Route: 058
     Dates: start: 20090101
  3. NOVOLOG [Concomitant]
  4. LEVOTHYROXINE SODIUM [Concomitant]
  5. FLUOXETINE [Concomitant]
  6. VICODIN [Concomitant]
  7. TRAMADOL HCL [Concomitant]

REACTIONS (2)
  - HYPOGLYCAEMIA [None]
  - ROAD TRAFFIC ACCIDENT [None]
